FAERS Safety Report 12936345 (Version 1)
Quarter: 2016Q4

REPORT INFORMATION
  Report Type: Spontaneous
  Country: US (occurrence: US)
  Receive Date: 20161113
  Receipt Date: 20161113
  Transmission Date: 20170207
  Serious: Yes (Hospitalization, Disabling, Other)
  Sender: FDA-Public Use
  Company Number: None

PATIENT
  Age: 64 Year
  Sex: Male
  Weight: 69.7 kg

DRUGS (5)
  1. LEVAQUIN [Suspect]
     Active Substance: LEVOFLOXACIN
     Indication: INFECTION
     Route: 048
     Dates: start: 20160624, end: 20160703
  2. PREDNISONE. [Concomitant]
     Active Substance: PREDNISONE
  3. MESTINON (FOR MS) WARFARIN [Concomitant]
  4. CELLCEPT [Concomitant]
     Active Substance: MYCOPHENOLATE MOFETIL\MYCOPHENOLATE MOFETIL HYDROCHLORIDE
  5. IVC [Concomitant]

REACTIONS (13)
  - Dyspnoea [None]
  - Gait disturbance [None]
  - Groin pain [None]
  - Back pain [None]
  - Infection [None]
  - Depression [None]
  - Weight decreased [None]
  - Discomfort [None]
  - Back disorder [None]
  - Hypersomnia [None]
  - Thrombosis [None]
  - Walking aid user [None]
  - Ageusia [None]

NARRATIVE: CASE EVENT DATE: 20160704
